FAERS Safety Report 8573831-4 (Version None)
Quarter: 2012Q3

REPORT INFORMATION
  Report Type: 
  Country: None (occurrence: None)
  Receive Date: 20120806
  Receipt Date: 20110831
  Transmission Date: 20120928
  Serious: No
  Sender: FDA-Public Use
  Company Number: US-GLAXOSMITHKLINE-A0943004A

PATIENT
  Sex: Female

DRUGS (3)
  1. SPIRIVA [Concomitant]
  2. FLUTICASONE PROPIONATE [Suspect]
     Indication: EMPHYSEMA
     Dosage: 1PUFF TWICE PER DAY
     Route: 055
  3. SINGULAIR [Concomitant]

REACTIONS (3)
  - TONGUE COATED [None]
  - CANDIDIASIS [None]
  - DRY MOUTH [None]
